FAERS Safety Report 5664047-X (Version None)
Quarter: 2008Q1

REPORT INFORMATION
  Report Type: 
  Country: None (occurrence: None)
  Receive Date: 20080314
  Receipt Date: 20080308
  Transmission Date: 20080703
  Serious: Yes (Hospitalization)
  Sender: FDA-Public Use
  Company Number: FR-NOVOPROD-272156

PATIENT
  Age: 55 Year
  Sex: Female

DRUGS (12)
  1. ACTRAPID [Suspect]
     Indication: TYPE 1 DIABETES MELLITUS
     Dosage: 16 IU, QD
  2. INSULATARD FLEXPEN [Suspect]
     Indication: DIABETES MELLITUS
     Dosage: 18 IU, QD
  3. INSULATARD FLEXPEN [Suspect]
     Indication: INSULIN-REQUIRING TYPE 2 DIABETES MELLITUS
  4. DETENSIEL                          /00802601/ [Suspect]
     Dosage: 10 MG, QD
  5. TOPALGIC                           /00599202/ [Concomitant]
  6. DAFALGAN                           /00020001/ [Concomitant]
  7. KARDEGIC                           /00002703/ [Concomitant]
  8. COVERSYL                           /00790701/ [Concomitant]
  9. INNOHEP                            /00889602/ [Concomitant]
  10. FONZYLANE [Concomitant]
  11. OGAST [Concomitant]
  12. TEMESTA                            /00273201/ [Concomitant]

REACTIONS (7)
  - FALL [None]
  - GLYCOSYLATED HAEMOGLOBIN INCREASED [None]
  - HYPOGLYCAEMIA [None]
  - MALAISE [None]
  - MITOCHONDRIAL CYTOPATHY [None]
  - MUSCLE SPASMS [None]
  - RENAL FAILURE [None]
